FAERS Safety Report 9322425 (Version 1)
Quarter: 2013Q2

REPORT INFORMATION
  Report Type: Spontaneous
  Country: US (occurrence: US)
  Receive Date: 20130531
  Receipt Date: 20130531
  Transmission Date: 20140414
  Serious: No
  Sender: FDA-Public Use
  Company Number: US-PFIZER INC-2013166173

PATIENT
  Sex: 0

DRUGS (1)
  1. ALPRAZOLAM [Suspect]
     Indication: SLEEP DISORDER
     Dosage: 4 MG, 1X/DAY (EVERY EVENING)

REACTIONS (3)
  - Off label use [Unknown]
  - Sleep disorder [Unknown]
  - Therapeutic response unexpected [Unknown]
